FAERS Safety Report 5794838-6 (Version None)
Quarter: 2008Q2

REPORT INFORMATION
  Report Type: 
  Country: None (occurrence: None)
  Receive Date: 20080630
  Receipt Date: 20080626
  Transmission Date: 20081010
  Serious: Yes (Hospitalization)
  Sender: FDA-Public Use
  Company Number: B0527017A

PATIENT
  Age: 5 Month
  Sex: Male

DRUGS (4)
  1. AMOXICILLIN [Suspect]
     Indication: BRONCHITIS
     Route: 048
     Dates: start: 20070314, end: 20070321
  2. FLIXOTIDE [Suspect]
     Indication: BRONCHITIS
     Route: 055
     Dates: start: 20070314, end: 20070321
  3. VENTOLIN [Suspect]
     Indication: BRONCHITIS
     Route: 055
     Dates: start: 20070314, end: 20070321
  4. ESTILSONA [Suspect]
     Indication: BRONCHITIS
     Route: 048
     Dates: start: 20070314, end: 20070321

REACTIONS (3)
  - BENIGN INTRACRANIAL HYPERTENSION [None]
  - FONTANELLE BULGING [None]
  - VOMITING PROJECTILE [None]
